FAERS Safety Report 6194060-8 (Version None)
Quarter: 2009Q2

REPORT INFORMATION
  Report Type: 
  Country: None (occurrence: None)
  Receive Date: 20090518
  Receipt Date: 20090513
  Transmission Date: 20091009
  Serious: Yes (Hospitalization)
  Sender: FDA-Public Use
  Company Number: FR-PFIZER INC-2008099471

PATIENT
  Age: 18 Year

DRUGS (4)
  1. CHAMPIX [Suspect]
     Dosage: 1 MG, UNK
     Route: 048
     Dates: start: 20081017, end: 20081024
  2. PRAZEPAM [Concomitant]
  3. BETAMETHASONE [Concomitant]
  4. DOMPERIDONE [Concomitant]

REACTIONS (3)
  - ABNORMAL BEHAVIOUR [None]
  - NIGHTMARE [None]
  - SUICIDE ATTEMPT [None]
